FAERS Safety Report 13878757 (Version 1)
Quarter: 2017Q3

REPORT INFORMATION
  Report Type: Spontaneous
  Country: GB (occurrence: GB)
  Receive Date: 20170817
  Receipt Date: 20170817
  Transmission Date: 20171127
  Serious: Yes (Other)
  Sender: FDA-Public Use
  Company Number: GB-BAYER-2017-156691

PATIENT
  Age: 59 Year
  Sex: Female
  Weight: 86 kg

DRUGS (39)
  1. CIPROXIN [Suspect]
     Active Substance: CIPROFLOXACIN
     Dosage: UNK
     Dates: start: 20170804
  2. LACTULOSE. [Concomitant]
     Active Substance: LACTULOSE
     Dosage: 15 ML, UNK
     Dates: start: 20170801
  3. PREGABALIN. [Concomitant]
     Active Substance: PREGABALIN
     Dosage: 1 DF, UNK
     Dates: start: 20170804
  4. SEVELAMER [Concomitant]
     Active Substance: SEVELAMER
     Dosage: 2 DF, UNK
     Dates: start: 20170804
  5. TIOTROPIUM [Concomitant]
     Active Substance: TIOTROPIUM
     Dosage: 1 DF, UNK
     Route: 055
     Dates: start: 20170228, end: 20170804
  6. CALCICHEW [Concomitant]
     Active Substance: CALCIUM CARBONATE
     Dosage: 1 DF, UNK
     Dates: start: 20170228, end: 20170804
  7. HYDROXYCARBAMIDE [Concomitant]
     Active Substance: HYDROXYUREA
     Dosage: 1 DF, UNK
     Dates: start: 20170228, end: 20170804
  8. ALPHOSYL [Concomitant]
     Dosage: 1 DF, UNK
     Dates: start: 20170228, end: 20170804
  9. CHEMYDUR [Concomitant]
     Dosage: UNK
     Dates: start: 20170228, end: 20170804
  10. FENTANYL. [Concomitant]
     Active Substance: FENTANYL
     Dosage: 1 DF, UNK
     Dates: start: 20170804
  11. BECLOMETASONE DIPROPIONATE [Concomitant]
     Active Substance: BECLOMETHASONE DIPROPIONATE
     Dosage: 1 DF, UNK
     Dates: start: 20170228
  12. GLYCERYL TRINITRATE [Concomitant]
     Active Substance: NITROGLYCERIN
     Dosage: 1 DF, UNK
     Route: 060
     Dates: start: 20170804
  13. SERTRALINE [Concomitant]
     Active Substance: SERTRALINE HYDROCHLORIDE
     Dosage: 1 DF, UNK
     Dates: start: 20170804
  14. AMITRIPTYLINE HYDROCHLORIDE. [Concomitant]
     Active Substance: AMITRIPTYLINE HYDROCHLORIDE
     Dosage: 1 DF, UNK
     Dates: start: 20170228, end: 20170804
  15. DOXAZOSIN [Concomitant]
     Active Substance: DOXAZOSIN\DOXAZOSIN MESYLATE
     Dosage: 2 DF, UNK
     Dates: start: 20170228
  16. SODIUM BICARBONATE. [Concomitant]
     Active Substance: SODIUM BICARBONATE
     Dosage: 1 DF, UNK
     Dates: start: 20170228, end: 20170804
  17. INSULIN GLARGINE [Concomitant]
     Active Substance: INSULIN GLARGINE
     Dosage: 18 IU, UNK
     Dates: start: 20170228
  18. ACIDEX [CALCIUM CARBONATE,SODIUM ALGINATE,SODIUM BICARBONATE] [Concomitant]
     Dosage: 5 ML, PRN
     Dates: start: 20170804
  19. ATORVASTATIN [Concomitant]
     Active Substance: ATORVASTATIN
     Dosage: 1 DF, UNK
     Dates: start: 20170228
  20. AZATHIOPRINE. [Concomitant]
     Active Substance: AZATHIOPRINE
     Dosage: 2 DF, UNK
     Dates: start: 20170228, end: 20170804
  21. DOCUSATE SODIUM. [Concomitant]
     Active Substance: DOCUSATE SODIUM
     Dosage: 2 DF, UNK
     Dates: start: 20170804
  22. NEORECORMON [Concomitant]
     Active Substance: ERYTHROPOIETIN
     Dosage: 1 DF, UNK
     Dates: start: 20170804
  23. PARACETAMOL [Concomitant]
     Active Substance: ACETAMINOPHEN
     Dosage: UNK
     Dates: start: 20170228
  24. HYDRALAZINE [Concomitant]
     Active Substance: HYDRALAZINE HYDROCHLORIDE
     Dosage: 2 DF, UNK
     Dates: start: 20170228
  25. BISOPROLOL [Concomitant]
     Active Substance: BISOPROLOL
     Dosage: 1 DF, UNK
     Dates: start: 20170228
  26. TIOTROPIUM BROMIDE [Concomitant]
     Active Substance: TIOTROPIUM BROMIDE
     Dosage: 1 DF, UNK
     Route: 055
     Dates: start: 20170804
  27. CLOBETASOL PROPIONATE. [Concomitant]
     Active Substance: CLOBETASOL PROPIONATE
     Dosage: 1 DF, UNK
     Dates: start: 20140213, end: 20170804
  28. HUMALOG [Concomitant]
     Active Substance: INSULIN LISPRO
     Dosage: 14 IU, UNK
     Dates: start: 20170228, end: 20170804
  29. LAXIDO [Concomitant]
     Active Substance: POLYETHYLENE GLYCOL 3350\POTASSIUM CHLORIDE\SODIUM BICARBONATE\SODIUM CHLORIDE
     Dosage: 1 DF, UNK
     Dates: start: 20170804
  30. WARFARIN SODIUM. [Concomitant]
     Active Substance: WARFARIN SODIUM
     Dosage: UNK
     Dates: start: 20170228, end: 20170804
  31. ALFACALCIDOL [Concomitant]
     Active Substance: ALFACALCIDOL
     Dosage: 1 DF, UNK
     Dates: start: 20170228
  32. AMLODIPINE [Concomitant]
     Active Substance: AMLODIPINE BESYLATE
     Indication: ILL-DEFINED DISORDER
     Dosage: 1 DF, UNK
     Dates: start: 20170228
  33. CETOMACROGOL [CETOMACROGOL 1000,CETOSTEARYL ALCOHOL] [Concomitant]
     Dosage: 1 DF, UNK
     Dates: start: 20170804
  34. CLOPIDOGREL [Concomitant]
     Active Substance: CLOPIDOGREL BISULFATE
     Dosage: 1 DF, UNK
     Dates: start: 20170804
  35. FOLIC ACID. [Concomitant]
     Active Substance: FOLIC ACID
     Dosage: 1 DF, UNK
     Dates: start: 20170228
  36. IRBESARTAN. [Concomitant]
     Active Substance: IRBESARTAN
     Dosage: 1 DF, UNK
     Dates: start: 20170228
  37. LANSOPRAZOLE. [Concomitant]
     Active Substance: LANSOPRAZOLE
     Dosage: 1 DF, UNK
     Dates: start: 20170228
  38. SENNA [Concomitant]
     Active Substance: SENNA LEAF\SENNOSIDES\SENNOSIDES A AND B
     Dosage: 2 DF, UNK
     Dates: start: 20170228
  39. TORASEMIDE [Concomitant]
     Active Substance: TORSEMIDE
     Dosage: 3 DF, UNK
     Dates: start: 20170228, end: 20170804

REACTIONS (1)
  - Dermatitis bullous [Recovered/Resolved]

NARRATIVE: CASE EVENT DATE: 20170804
